FAERS Safety Report 6660663-7 (Version None)
Quarter: 2010Q1

REPORT INFORMATION
  Report Type: 
  Country: None (occurrence: None)
  Receive Date: 20100331
  Receipt Date: 20100324
  Transmission Date: 20100710
  Serious: Yes (Death)
  Sender: FDA-Public Use
  Company Number: JP-BAYER-200914409BYL

PATIENT
  Age: 81 Year
  Sex: Female
  Weight: 51 kg

DRUGS (5)
  1. NEXAVAR [Suspect]
     Indication: HEPATIC NEOPLASM MALIGNANT
     Dosage: TOTAL DAILY DOSE: 800 MG  UNIT DOSE: 200 MG
     Route: 048
     Dates: start: 20091014, end: 20091026
  2. NEXAVAR [Suspect]
     Dosage: UNIT DOSE: 200 MG
     Route: 048
     Dates: start: 20091027, end: 20091031
  3. URSO 250 [Concomitant]
     Indication: HEPATIC CIRRHOSIS
     Dosage: UNIT DOSE: 100 MG
     Route: 048
     Dates: end: 20091113
  4. FAMOTIDINE [Concomitant]
     Indication: GASTRITIS
     Dosage: UNIT DOSE: 20 MG
     Route: 048
     Dates: end: 20091113
  5. DIOVAN [Concomitant]
     Indication: HYPERTENSION
     Dosage: UNIT DOSE: 80 MG
     Route: 048
     Dates: end: 20091113

REACTIONS (2)
  - DECREASED APPETITE [None]
  - LIVER CARCINOMA RUPTURED [None]
